FAERS Safety Report 16712200 (Version 4)
Quarter: 2019Q3

REPORT INFORMATION
  Report Type: Spontaneous
  Country: US (occurrence: US)
  Receive Date: 20190816
  Receipt Date: 20190918
  Transmission Date: 20191004
  Serious: No
  Sender: FDA-Public Use
  Company Number: US-BIOGEN-2019BI00772893

PATIENT
  Age: 39 Year
  Sex: Female

DRUGS (9)
  1. TECFIDERA [Suspect]
     Active Substance: DIMETHYL FUMARATE
     Dosage: 240 MG DAILY WEEK 3-4
  2. TECFIDERA [Suspect]
     Active Substance: DIMETHYL FUMARATE
     Route: 048
     Dates: start: 20190825
  3. TECFIDERA [Suspect]
     Active Substance: DIMETHYL FUMARATE
     Dosage: STARTER DOSE
     Route: 048
     Dates: start: 20190725, end: 20190807
  4. TECFIDERA [Suspect]
     Active Substance: DIMETHYL FUMARATE
     Indication: MULTIPLE SCLEROSIS
     Dosage: 120 MG DAILY WEEK 1-2
     Route: 048
     Dates: start: 20190728
  5. TECFIDERA [Suspect]
     Active Substance: DIMETHYL FUMARATE
     Dosage: TECFIDERA 240 MG BID STARTING ON WEEK 5
     Route: 048
  6. TECFIDERA [Suspect]
     Active Substance: DIMETHYL FUMARATE
     Dosage: STARTED THIS DOSE 2 TO 3 DAYS AGO
     Route: 048
  7. PREDNISONE. [Concomitant]
     Active Substance: PREDNISONE
     Route: 065
  8. TECFIDERA [Suspect]
     Active Substance: DIMETHYL FUMARATE
     Route: 048
     Dates: start: 20190808
  9. TECFIDERA [Suspect]
     Active Substance: DIMETHYL FUMARATE
     Dosage: TOOK FOR 2 WEEKS
     Route: 048
     Dates: start: 20190728

REACTIONS (20)
  - Decreased appetite [Unknown]
  - Tonsillar hypertrophy [Not Recovered/Not Resolved]
  - Headache [Unknown]
  - Pruritus [Recovered/Resolved]
  - Eye movement disorder [Not Recovered/Not Resolved]
  - Lymph node pain [Recovered/Resolved]
  - Diarrhoea [Recovered/Resolved]
  - Gastrointestinal disorder [Not Recovered/Not Resolved]
  - Oropharyngeal discomfort [Not Recovered/Not Resolved]
  - Lymphadenopathy [Not Recovered/Not Resolved]
  - Eructation [Unknown]
  - Multiple sclerosis relapse [Unknown]
  - Somnolence [Unknown]
  - Dysmenorrhoea [Unknown]
  - Pyrexia [Unknown]
  - Cold sweat [Unknown]
  - Fatigue [Unknown]
  - Nausea [Recovered/Resolved]
  - Flushing [Recovered/Resolved]
  - White blood cell disorder [Unknown]

NARRATIVE: CASE EVENT DATE: 20190725
